FAERS Safety Report 24628808 (Version 1)
Quarter: 2024Q4

REPORT INFORMATION
  Report Type: Report from Study
  Country: US (occurrence: US)
  Receive Date: 20241118
  Receipt Date: 20241118
  Transmission Date: 20250115
  Serious: Yes (Hospitalization)
  Sender: ABBVIE
  Company Number: US-ABBVIE-5995204

PATIENT
  Age: 87 Year
  Sex: Male

DRUGS (1)
  1. LINZESS [Suspect]
     Active Substance: LINACLOTIDE
     Indication: Product used for unknown indication
     Dosage: TAKE ONE CAPSULE BY MOUTH DAILY
     Route: 048

REACTIONS (3)
  - Biopsy lung [Not Recovered/Not Resolved]
  - Malaise [Unknown]
  - Confusional state [Unknown]

NARRATIVE: CASE EVENT DATE: 20241101
